FAERS Safety Report 17188183 (Version 2)
Quarter: 2019Q4

REPORT INFORMATION
  Report Type: Spontaneous
  Country: US (occurrence: US)
  Receive Date: 20191221
  Receipt Date: 20191221
  Transmission Date: 20200122
  Serious: Yes (Death, Other)
  Sender: FDA-Public Use
  Company Number: NVSC2019US073812

PATIENT
  Age: 2 Day
  Sex: Female
  Weight: 2.16 kg

DRUGS (8)
  1. TACROLIMUS. [Suspect]
     Active Substance: TACROLIMUS
     Indication: FOETAL EXPOSURE DURING PREGNANCY
     Dosage: MATERNAL DOSE(3 MG IN MORNING 2MG IN NIGHT)
     Route: 064
  2. EPOGEN [Suspect]
     Active Substance: ERYTHROPOIETIN
     Indication: FOETAL EXPOSURE DURING PREGNANCY
     Route: 064
  3. MYCOPHENOLATE MOFETIL. [Suspect]
     Active Substance: MYCOPHENOLATE MOFETIL
     Indication: FOETAL EXPOSURE DURING PREGNANCY
     Dosage: MATERNAL DOSE(250MG BID)
     Route: 064
  4. METOPROLOL. [Suspect]
     Active Substance: METOPROLOL
     Indication: FOETAL EXPOSURE DURING PREGNANCY
     Route: 064
  5. LASIX [Suspect]
     Active Substance: FUROSEMIDE
     Indication: FOETAL EXPOSURE DURING PREGNANCY
     Route: 064
  6. PREDNISONE. [Suspect]
     Active Substance: PREDNISONE
     Indication: FOETAL EXPOSURE DURING PREGNANCY
     Dosage: MATERNAL DOSE( 5MG QD)
     Route: 064
  7. NORVASC [Suspect]
     Active Substance: AMLODIPINE BESYLATE
     Indication: FOETAL EXPOSURE DURING PREGNANCY
     Route: 064
  8. ACYCLOVIR. [Suspect]
     Active Substance: ACYCLOVIR
     Indication: FOETAL EXPOSURE DURING PREGNANCY
     Dosage: UNK
     Route: 064

REACTIONS (18)
  - Congenital diaphragmatic hernia [Unknown]
  - Neck deformity [Unknown]
  - Cyanosis [Unknown]
  - Foetal exposure during pregnancy [Unknown]
  - Fistula [Unknown]
  - Microtia [Unknown]
  - Ventricular septal defect [Unknown]
  - Premature baby [Unknown]
  - Extrarenal pelvis [Unknown]
  - Pulmonary hypoplasia [Fatal]
  - Heart disease congenital [Unknown]
  - Cleft palate [Unknown]
  - Dysmorphism [Unknown]
  - Pulmonary hypertension [Unknown]
  - Nail aplasia [Unknown]
  - Oesophageal atresia [Unknown]
  - Eye disorder [Unknown]
  - Ear malformation [Unknown]
